FAERS Safety Report 5012493-X (Version None)
Quarter: 2006Q2

REPORT INFORMATION
  Report Type: 
  Country: None (occurrence: None)
  Receive Date: 20060526
  Receipt Date: 20051127
  Transmission Date: 20061013
  Serious: Yes (Hospitalization)
  Sender: FDA-Public Use
  Company Number: FR-ABBOTT-05P-056-0318137-01

PATIENT
  Sex: Male

DRUGS (5)
  1. RITONAVIR SOFT GELATIN CAPSULES [Suspect]
     Indication: HIV INFECTION
     Route: 048
     Dates: start: 20040106, end: 20051025
  2. TIPRANAVIR [Concomitant]
     Indication: HIV INFECTION
     Route: 048
     Dates: start: 20040106, end: 20051025
  3. EFAVIRENZ [Concomitant]
     Indication: HIV INFECTION
     Route: 048
     Dates: start: 20040106, end: 20051025
  4. TRIZIVIR [Concomitant]
     Indication: HIV INFECTION
     Route: 048
     Dates: start: 20040106, end: 20050916
  5. LAMIVUDINE AND ZIDOVUDINE [Concomitant]
     Indication: HIV INFECTION
     Route: 048
     Dates: start: 20050916

REACTIONS (3)
  - DRUG INEFFECTIVE [None]
  - PANCYTOPENIA [None]
  - VIRAL INFECTION [None]
